FAERS Safety Report 24110365 (Version 1)
Quarter: 2024Q3

REPORT INFORMATION
  Report Type: Report from Study
  Country: US (occurrence: None)
  Receive Date: 20240718
  Receipt Date: 20240718
  Transmission Date: 20241016
  Serious: Yes (Hospitalization)
  Sender: ASTRAZENECA
  Company Number: 2020SE12079

PATIENT
  Age: 31161 Day
  Sex: Male

DRUGS (14)
  1. CALQUENCE [Suspect]
     Active Substance: ACALABRUTINIB
     Indication: Mantle cell lymphoma
     Route: 048
     Dates: start: 20190924, end: 20200120
  2. ASPIRIN [Concomitant]
     Active Substance: ASPIRIN
  3. KETOCONAZOLE [Concomitant]
     Active Substance: KETOCONAZOLE
  4. FUROSEMIDE [Concomitant]
     Active Substance: FUROSEMIDE
  5. ACYCLOVIR [Concomitant]
     Active Substance: ACYCLOVIR
  6. MIRALAX [Concomitant]
     Active Substance: POLYETHYLENE GLYCOL 3350
  7. TRIAMCINOLONE ACETONIDE [Concomitant]
     Active Substance: TRIAMCINOLONE ACETONIDE
  8. KEFLEX [Concomitant]
     Active Substance: CEPHALEXIN
  9. ATORVASTATIN [Concomitant]
     Active Substance: ATORVASTATIN
  10. ESCITALOPRAM [Concomitant]
     Active Substance: ESCITALOPRAM OXALATE
  11. MINERALS\VITAMINS [Concomitant]
     Active Substance: MINERALS\VITAMINS
  12. HUMALOG [Concomitant]
     Active Substance: INSULIN LISPRO
  13. LANTUS [Concomitant]
     Active Substance: INSULIN GLARGINE
  14. LYRICA [Concomitant]
     Active Substance: PREGABALIN

REACTIONS (1)
  - Myocardial infarction [Unknown]

NARRATIVE: CASE EVENT DATE: 20200116
